FAERS Safety Report 7604414-8 (Version None)
Quarter: 2011Q3

REPORT INFORMATION
  Report Type: 
  Country: None (occurrence: None)
  Receive Date: 20110712
  Receipt Date: 20110627
  Transmission Date: 20111222
  Serious: No
  Sender: FDA-Public Use
  Company Number: US-B.I. PHARMACEUTICALS,INC./RIDGEFIELD-2011-BP-16474BP

PATIENT
  Sex: Male

DRUGS (2)
  1. PROPAFENONE HCL [Suspect]
  2. PRADAXA [Suspect]
     Dosage: 300 MG

REACTIONS (3)
  - PYREXIA [None]
  - HAEMORRHAGE [None]
  - BLOOD BLISTER [None]
